FAERS Safety Report 5376862-0 (Version None)
Quarter: 2007Q2

REPORT INFORMATION
  Report Type: 
  Country: None (occurrence: None)
  Receive Date: 20070628
  Receipt Date: 20070628
  Transmission Date: 20071010
  Serious: Yes (Disabling)
  Sender: FDA-Public Use
  Company Number: None

PATIENT
  Sex: Male
  Weight: 78.9259 kg

DRUGS (1)
  1. ARALEN [Suspect]
     Indication: MALARIA PROPHYLAXIS
     Dosage: 500 1X WEEK ORAL
     Route: 048

REACTIONS (5)
  - DIZZINESS [None]
  - FATIGUE [None]
  - IMPAIRED WORK ABILITY [None]
  - MENTAL DISORDER [None]
  - VERTIGO [None]
